FAERS Safety Report 5408385-4 (Version None)
Quarter: 2007Q3

REPORT INFORMATION
  Report Type: 
  Country: None (occurrence: None)
  Receive Date: 20070808
  Receipt Date: 20070720
  Transmission Date: 20080115
  Serious: No
  Sender: FDA-Public Use
  Company Number: GB-ASTRAZENECA-2007GB01536

PATIENT
  Age: 71 Year
  Sex: Female

DRUGS (1)
  1. SEROQUEL [Suspect]
     Indication: SCHIZOPHRENIA
     Dosage: 200 MG AM AND 250 MG PM
     Route: 048

REACTIONS (2)
  - EOSINOPHILIA [None]
  - PERIORBITAL OEDEMA [None]
